FAERS Safety Report 16414622 (Version 1)
Quarter: 2019Q2

REPORT INFORMATION
  Report Type: Spontaneous
  Country: US (occurrence: US)
  Receive Date: 20190610
  Receipt Date: 20190610
  Transmission Date: 20190711
  Serious: Yes (Other)
  Sender: FDA-Public Use
  Company Number: None

PATIENT
  Age: 47 Year
  Sex: Female
  Weight: 98.1 kg

DRUGS (8)
  1. PROVENTIL HFA [Concomitant]
     Active Substance: ALBUTEROL SULFATE
  2. ANASTROZOLE. [Concomitant]
     Active Substance: ANASTROZOLE
  3. OMEPRAZOLE. [Concomitant]
     Active Substance: OMEPRAZOLE
  4. BENZONATATE. [Concomitant]
     Active Substance: BENZONATATE
  5. TYLENOL [Concomitant]
     Active Substance: ACETAMINOPHEN
  6. LIPITOR [Concomitant]
     Active Substance: ATORVASTATIN CALCIUM
  7. IBRANCE [Suspect]
     Active Substance: PALBOCICLIB
     Indication: BREAST CANCER FEMALE
     Route: 048
     Dates: start: 20190419
  8. ZOLOFT [Concomitant]
     Active Substance: SERTRALINE HYDROCHLORIDE

REACTIONS (2)
  - Gastrooesophageal reflux disease [None]
  - Blood cholesterol increased [None]
